FAERS Safety Report 21669594 (Version 2)
Quarter: 2023Q1

REPORT INFORMATION
  Report Type: Report from Study
  Country: US (occurrence: US)
  Receive Date: 20221201
  Receipt Date: 20230322
  Transmission Date: 20230417
  Serious: Yes (Other)
  Sender: FDA-Public Use
  Company Number: US-ABBVIE-4220259

PATIENT
  Age: 69 Year
  Sex: Male
  Weight: 145.14 kg

DRUGS (1)
  1. RINVOQ [Suspect]
     Active Substance: UPADACITINIB
     Indication: Product used for unknown indication
     Route: 048

REACTIONS (3)
  - Knee operation [Unknown]
  - Pneumonia [Unknown]
  - Eczema [Unknown]

NARRATIVE: CASE EVENT DATE: 20220401
